FAERS Safety Report 23237702 (Version 1)
Quarter: 2023Q4

REPORT INFORMATION
  Report Type: Report from Study
  Country: MX (occurrence: MX)
  Receive Date: 20231128
  Receipt Date: 20231128
  Transmission Date: 20240109
  Serious: Yes (Hospitalization)
  Sender: FDA-Public Use
  Company Number: MX-ABBVIE-5511486

PATIENT
  Sex: Male
  Weight: 72 kg

DRUGS (1)
  1. VENCLEXTA [Suspect]
     Active Substance: VENETOCLAX
     Indication: Chronic lymphocytic leukaemia
     Dosage: 400 MILLIGRAM?FORM STRENGTH: 100 MILLIGRAM
     Route: 048
     Dates: start: 20230925, end: 202311

REACTIONS (4)
  - SARS-CoV-2 test positive [Recovering/Resolving]
  - Anosmia [Unknown]
  - Lung disorder [Recovering/Resolving]
  - Ageusia [Unknown]

NARRATIVE: CASE EVENT DATE: 20230101
